FAERS Safety Report 4455579-0 (Version None)
Quarter: 2004Q3

REPORT INFORMATION
  Report Type: 
  Country: None (occurrence: None)
  Receive Date: 20040922
  Receipt Date: 20040917
  Transmission Date: 20050211
  Serious: Yes (Life-Threatening, Hospitalization)
  Sender: FDA-Public Use
  Company Number: PHBS2004CO12412

PATIENT
  Age: 59 Year
  Sex: Female

DRUGS (6)
  1. TRILEPTAL [Suspect]
     Indication: EPILEPSY
     Dosage: 300 MG/D
     Route: 048
     Dates: start: 20040801
  2. TRILEPTAL [Suspect]
     Dosage: 900 MG/D
     Route: 048
  3. TRILEPTAL [Suspect]
     Dosage: 300 MG/D
     Route: 048
  4. HYDROCHLOROTHIAZIDE [Concomitant]
     Route: 065
  5. VALPROIC ACID [Concomitant]
     Route: 065
  6. LAMICTAL [Concomitant]
     Route: 065

REACTIONS (6)
  - ANOREXIA [None]
  - BLOOD SODIUM DECREASED [None]
  - GASTRITIS [None]
  - HYPONATRAEMIA [None]
  - NAUSEA [None]
  - RESPIRATORY ARREST [None]
